FAERS Safety Report 15163901 (Version 1)
Quarter: 2018Q3

REPORT INFORMATION
  Report Type: Spontaneous
  Country: GB (occurrence: GB)
  Receive Date: 20180719
  Receipt Date: 20180719
  Transmission Date: 20181010
  Serious: Yes (Other)
  Sender: FDA-Public Use
  Company Number: GB-TEVA-2018-GB-928847

PATIENT
  Age: 53 Year
  Sex: Male
  Weight: 78 kg

DRUGS (5)
  1. PIROXICAM. [Suspect]
     Active Substance: PIROXICAM
     Route: 065
     Dates: start: 20180615
  2. SIMVASTATIN. [Concomitant]
     Active Substance: SIMVASTATIN
     Dosage: 1 DOSAGE FORMS DAILY; AT NIGHT
     Route: 065
     Dates: start: 20161108
  3. PIROXICAM. [Suspect]
     Active Substance: PIROXICAM
     Route: 065
     Dates: start: 20180315
  4. SALBUTAMOL [Concomitant]
     Active Substance: ALBUTEROL
     Dosage: 2 PUFFS FOUR TIMES DAILY
     Route: 065
     Dates: start: 20161108
  5. IRBESARTAN. [Concomitant]
     Active Substance: IRBESARTAN
     Dosage: 2 DOSAGE FORMS DAILY;
     Dates: start: 20180104

REACTIONS (2)
  - Gastrointestinal disorder [Recovered/Resolved]
  - Drug hypersensitivity [Unknown]

NARRATIVE: CASE EVENT DATE: 20180615
